FAERS Safety Report 4316153-X (Version None)
Quarter: 2004Q1

REPORT INFORMATION
  Report Type: 
  Country: None (occurrence: None)
  Receive Date: 20040311
  Receipt Date: 20040311
  Transmission Date: 20041129
  Serious: Yes (Other)
  Sender: FDA-Public Use
  Company Number: None

PATIENT
  Age: 27 Year
  Sex: Female

DRUGS (3)
  1. LEXAPRO [Suspect]
     Indication: ANXIETY
     Dosage: 20 MG QDAY ORAL
     Route: 048
     Dates: start: 20040303, end: 20040306
  2. LEXAPRO [Suspect]
     Indication: DEPRESSION
     Dosage: 20 MG QDAY ORAL
     Route: 048
     Dates: start: 20040303, end: 20040306
  3. RELPAX [Suspect]
     Indication: MIGRAINE
     Dosage: 40 MG D2HX2DOS ORAL
     Route: 048
     Dates: start: 20040307, end: 20040307

REACTIONS (5)
  - ANXIETY [None]
  - DYSTONIA [None]
  - INSOMNIA [None]
  - MIGRAINE [None]
  - TIC [None]
